FAERS Safety Report 25272599 (Version 2)
Quarter: 2025Q2

REPORT INFORMATION
  Report Type: Report from Study
  Country: CA (occurrence: CA)
  Receive Date: 20250506
  Receipt Date: 20250509
  Transmission Date: 20250717
  Serious: Yes (Death, Hospitalization)
  Sender: JOHNSON AND JOHNSON
  Company Number: CA-JNJFOC-20240227110

PATIENT
  Age: 38 Year
  Sex: Male

DRUGS (5)
  1. TREMFYA [Suspect]
     Active Substance: GUSELKUMAB
     Indication: Psoriasis
     Route: 058
     Dates: start: 20231116, end: 20240802
  2. TREMFYA [Suspect]
     Active Substance: GUSELKUMAB
     Indication: Psoriasis
     Route: 058
     Dates: start: 20231024
  3. TREMFYA [Suspect]
     Active Substance: GUSELKUMAB
     Route: 058
  4. TRAZODONE [Concomitant]
     Active Substance: TRAZODONE HYDROCHLORIDE
     Indication: Product used for unknown indication
  5. HYDROXYZINE [Concomitant]
     Active Substance: HYDROXYZINE HYDROCHLORIDE
     Indication: Product used for unknown indication

REACTIONS (9)
  - Death [Fatal]
  - Sepsis [Not Recovered/Not Resolved]
  - Pancreatitis [Unknown]
  - Hepatic cirrhosis [Unknown]
  - Alcohol withdrawal syndrome [Unknown]
  - Hepatic failure [Unknown]
  - Pancreatic cyst [Unknown]
  - Psoriasis [Unknown]
  - Speech disorder [Unknown]
